FAERS Safety Report 8795284 (Version 1)
Quarter: 2012Q4

REPORT INFORMATION
  Report Type: 
  Country: US (occurrence: US)
  Receive Date: 20120917
  Receipt Date: 20120917
  Transmission Date: 20130627
  Serious: No
  Sender: FDA-Public Use
  Company Number: US-009507513-1208USA011851

PATIENT

DRUGS (3)
  1. TEMODAR [Suspect]
     Indication: GLIOBLASTOMA MULTIFORME
     Dosage: 75 mg/m2, qd
     Route: 048
  2. TEMODAR [Suspect]
     Dosage: 200 mg/m2, days 1-5 every 28 days
     Route: 048
  3. PREDNISOLONE [Concomitant]
     Indication: LUMBAR RADICULOPATHY

REACTIONS (3)
  - Fatigue [Unknown]
  - Nausea [Unknown]
  - Deep vein thrombosis [Unknown]
